FAERS Safety Report 10198162 (Version 1)
Quarter: 2014Q2

REPORT INFORMATION
  Report Type: Spontaneous
  Country: US (occurrence: US)
  Receive Date: 20140527
  Receipt Date: 20140527
  Transmission Date: 20141212
  Serious: Yes (Other)
  Sender: FDA-Public Use
  Company Number: CHPA2014US006738

PATIENT
  Age: 78 Year
  Sex: Male

DRUGS (2)
  1. LAMISIL [Suspect]
     Indication: TINEA PEDIS
     Route: 061
  2. HYDROCORTISONE [Suspect]
     Indication: RASH

REACTIONS (1)
  - Retinal disorder [Recovering/Resolving]
